FAERS Safety Report 6213222-4 (Version None)
Quarter: 2009Q2

REPORT INFORMATION
  Report Type: 
  Country: None (occurrence: None)
  Receive Date: 20090603
  Receipt Date: 20090521
  Transmission Date: 20091009
  Serious: Yes (Death)
  Sender: FDA-Public Use
  Company Number: US-JNJCH-2009014727

PATIENT

DRUGS (2)
  1. ASPIRIN [Suspect]
     Indication: CORONARY ARTERY DISEASE
     Dosage: TEXT:UNSPECIFIED
     Route: 065
  2. PRASUGREL [Suspect]
     Indication: CORONARY ARTERY DISEASE
     Dosage: TEXT:60 MG, THEN 10 MG DAILY
     Route: 065

REACTIONS (1)
  - INTRA-ABDOMINAL HAEMORRHAGE [None]
